FAERS Safety Report 5128676-4 (Version None)
Quarter: 2006Q4

REPORT INFORMATION
  Report Type: 
  Country: None (occurrence: None)
  Receive Date: 20061017
  Receipt Date: 20060913
  Transmission Date: 20070319
  Serious: Yes (Life-Threatening, Hospitalization)
  Sender: FDA-Public Use
  Company Number: 2006SE04930

PATIENT
  Age: 22379 Day
  Sex: Male
  Weight: 115 kg

DRUGS (10)
  1. ATACAND [Suspect]
     Indication: CARDIAC FAILURE
     Route: 048
     Dates: start: 20060821, end: 20060825
  2. ACENOCUMAROL [Concomitant]
     Indication: CARDIAC FAILURE
     Route: 048
  3. CARVEDIOL [Concomitant]
     Indication: CARDIAC FAILURE
     Route: 048
  4. AMIODARONE HCL [Concomitant]
     Indication: CARDIAC FAILURE
     Route: 048
     Dates: start: 20050101
  5. INSULIN [Concomitant]
     Indication: DIABETES MELLITUS
     Route: 058
  6. ENALAPRIL MALEATE [Concomitant]
     Indication: CARDIAC FAILURE
     Dosage: 10-20 MG/DAILY
     Route: 048
  7. FUROSEMIDUM [Concomitant]
     Indication: CARDIAC FAILURE
     Route: 042
     Dates: start: 20060821, end: 20060911
  8. ALDACTONE [Concomitant]
     Indication: CARDIAC FAILURE
     Route: 042
     Dates: start: 20060821, end: 20060911
  9. DOPAMINE HCL IN 5% DEXTROSE [Concomitant]
     Route: 042
     Dates: start: 20060821, end: 20060911
  10. POTASSIUM [Concomitant]
     Route: 048
     Dates: start: 20060821

REACTIONS (3)
  - BLOOD SODIUM DECREASED [None]
  - LOSS OF CONSCIOUSNESS [None]
  - VENTRICULAR TACHYCARDIA [None]
